FAERS Safety Report 5002495-1 (Version None)
Quarter: 2006Q2

REPORT INFORMATION
  Report Type: 
  Country: None (occurrence: None)
  Receive Date: 20060515
  Receipt Date: 20060314
  Transmission Date: 20061013
  Serious: Yes (Hospitalization)
  Sender: FDA-Public Use
  Company Number: CG-MERCK-0604USA02932

PATIENT
  Age: 22 Year
  Sex: Male
  Weight: 51 kg

DRUGS (1)
  1. STROMECTOL [Suspect]
     Route: 048
     Dates: start: 20060216, end: 20060216

REACTIONS (5)
  - ASTHENIA [None]
  - CONJUNCTIVAL HAEMORRHAGE [None]
  - EYELID OEDEMA [None]
  - PYREXIA [None]
  - SPEECH DISORDER [None]
